FAERS Safety Report 6373304-3 (Version None)
Quarter: 2009Q3

REPORT INFORMATION
  Report Type: 
  Country: None (occurrence: None)
  Receive Date: 20090924
  Receipt Date: 20090407
  Transmission Date: 20100115
  Serious: Yes (Hospitalization)
  Sender: FDA-Public Use
  Company Number: US-ASTRAZENECA-2009UW08746

PATIENT
  Age: 48 Year
  Sex: Female

DRUGS (3)
  1. SEROQUEL [Suspect]
     Dosage: 200 MG ONE IN THE MORNING AND TWO AT BEDTIME
     Route: 048
     Dates: start: 20050824
  2. EFFEXOR [Concomitant]
  3. KLONOPIN [Concomitant]

REACTIONS (1)
  - DIABETES MELLITUS [None]
